FAERS Safety Report 8323185 (Version 3)
Quarter: 2015Q3

REPORT INFORMATION
  Report Type: Report from Study
  Country: US (occurrence: US)
  Receive Date: 20120105
  Receipt Date: 20150803
  Transmission Date: 20151125
  Serious: Yes (Death)
  Sender: FDA-Public Use
  Company Number: US-ROCHE-1027485

PATIENT
  Age: 84 Year
  Sex: Male
  Weight: 84 kg

DRUGS (14)
  1. GEMZAR [Concomitant]
     Active Substance: GEMCITABINE HYDROCHLORIDE
     Route: 065
  2. NAVELBINE [Concomitant]
     Active Substance: VINORELBINE TARTRATE
     Route: 065
  3. PROTONIX (UNITED STATES) [Concomitant]
  4. ZOMETA [Concomitant]
     Active Substance: ZOLEDRONIC ACID
     Route: 065
  5. ANZEMET [Concomitant]
     Active Substance: DOLASETRON MESYLATE
     Route: 042
  6. AVASTIN [Suspect]
     Active Substance: BEVACIZUMAB
     Indication: LUNG NEOPLASM MALIGNANT
     Route: 042
     Dates: start: 20080815, end: 20090415
  7. ALOXI [Concomitant]
     Active Substance: PALONOSETRON HYDROCHLORIDE
     Route: 042
  8. TAXOTERE [Concomitant]
     Active Substance: DOCETAXEL
     Route: 042
  9. DECADRON [Concomitant]
     Active Substance: DEXAMETHASONE
     Route: 042
  10. AVASTIN [Suspect]
     Active Substance: BEVACIZUMAB
     Route: 042
  11. AVASTIN [Suspect]
     Active Substance: BEVACIZUMAB
     Route: 042
  12. CARBOPLATIN. [Concomitant]
     Active Substance: CARBOPLATIN
     Route: 042
  13. AVASTIN [Suspect]
     Active Substance: BEVACIZUMAB
     Route: 042
  14. NEULASTA [Concomitant]
     Active Substance: PEGFILGRASTIM
     Route: 058

REACTIONS (12)
  - Lung neoplasm malignant [Fatal]
  - Headache [Unknown]
  - Erythema [Unknown]
  - Skin disorder [Unknown]
  - Peripheral swelling [Unknown]
  - Pelvic discomfort [Recovering/Resolving]
  - Sneezing [Unknown]
  - Fatigue [Unknown]
  - Abdominal discomfort [Recovering/Resolving]
  - Cyanosis [Unknown]
  - Hypotension [Unknown]
  - Cough [Recovered/Resolved]

NARRATIVE: CASE EVENT DATE: 20090828
